FAERS Safety Report 4742715-1 (Version None)
Quarter: 2005Q3

REPORT INFORMATION
  Report Type: 
  Country: None (occurrence: None)
  Receive Date: 20050810
  Receipt Date: 20050810
  Transmission Date: 20060218
  Serious: Yes (Hospitalization)
  Sender: FDA-Public Use
  Company Number: None

PATIENT
  Age: 42 Year
  Sex: Female
  Weight: 90 kg

DRUGS (7)
  1. COMBIVIR [Suspect]
     Indication: HIV INFECTION
     Dosage: 300/150 BID PO
     Route: 048
     Dates: start: 20050404
  2. EFAVIRENZ [Suspect]
     Indication: HIV INFECTION
     Dosage: 600 QHS PO
     Route: 048
     Dates: start: 20050404
  3. AMITRIPTYLINE HCL [Concomitant]
  4. VITAMIN B COMPLEX CAP [Concomitant]
  5. BACTRIM [Concomitant]
  6. COTRIMOXAZOLE [Concomitant]
  7. HYDROCHLOROTHIAZIDE [Concomitant]

REACTIONS (1)
  - CEREBRAL INFARCTION [None]
